FAERS Safety Report 10008687 (Version 1)
Quarter: 2014Q1

REPORT INFORMATION
  Report Type: Spontaneous
  Country: US (occurrence: US)
  Receive Date: 20140312
  Receipt Date: 20140312
  Transmission Date: 20141002
  Serious: No
  Sender: FDA-Public Use
  Company Number: US-INCYTE CORPORATION-2012IN000598

PATIENT
  Age: 86 Year
  Sex: Male

DRUGS (2)
  1. JAKAFI [Suspect]
     Indication: MYELOFIBROSIS
     Dosage: UNK MG, BID
     Route: 048
     Dates: start: 20111215, end: 20120409
  2. JAKAFI [Suspect]
     Dosage: 25 MG, BID
     Route: 048
     Dates: start: 20120410, end: 20120411

REACTIONS (3)
  - Renal function test abnormal [Unknown]
  - Asthenia [Not Recovered/Not Resolved]
  - Haemoglobin abnormal [Unknown]
